FAERS Safety Report 10308987 (Version 4)
Quarter: 2014Q3

REPORT INFORMATION
  Report Type: Spontaneous
  Country: US (occurrence: US)
  Receive Date: 20140716
  Receipt Date: 20140813
  Transmission Date: 20150326
  Serious: Yes (Death, Hospitalization)
  Sender: FDA-Public Use
  Company Number: US-PFIZER INC-2014189849

PATIENT
  Age: 61 Year
  Sex: Female
  Weight: 99.77 kg

DRUGS (1)
  1. LYRICA [Suspect]
     Active Substance: PREGABALIN
     Indication: DIABETIC NEUROPATHY
     Dosage: 100 MG, 3X/DAY
     Route: 048
     Dates: start: 2013

REACTIONS (2)
  - Diabetic foot [Unknown]
  - Death [Fatal]

NARRATIVE: CASE EVENT DATE: 2014
